FAERS Safety Report 9143863 (Version 2)
Quarter: 2013Q3

REPORT INFORMATION
  Report Type: Spontaneous
  Country: BR (occurrence: BR)
  Receive Date: 20130306
  Receipt Date: 20130712
  Transmission Date: 20140515
  Serious: Yes (Hospitalization, Other)
  Sender: FDA-Public Use
  Company Number: BR-ASTRAZENECA-2013SE12978

PATIENT
  Age: 77 Year
  Sex: Female

DRUGS (2)
  1. BRILINTA [Suspect]
     Route: 048
  2. ASPIRIN (BAYER) (NON AZ PRODUCT) [Suspect]
     Route: 048

REACTIONS (5)
  - Acute myocardial infarction [Unknown]
  - Cardiac failure [Unknown]
  - Acute pulmonary oedema [Unknown]
  - Device occlusion [Unknown]
  - Haemorrhagic stroke [Recovered/Resolved]
